FAERS Safety Report 19912348 (Version 2)
Quarter: 2021Q4

REPORT INFORMATION
  Report Type: Spontaneous
  Country: CZ (occurrence: CZ)
  Receive Date: 20211004
  Receipt Date: 20211109
  Transmission Date: 20220304
  Serious: Yes (Other)
  Sender: FDA-Public Use
  Company Number: CZ-EMA-DD-20210924-BISHT_P-171455

PATIENT
  Age: 70 Year
  Sex: Female

DRUGS (9)
  1. OXALIPLATIN [Suspect]
     Active Substance: OXALIPLATIN
     Indication: Oesophageal cancer metastatic
     Dosage: UNK, QCY
     Dates: start: 201803
  2. FLUOROURACIL [Suspect]
     Active Substance: FLUOROURACIL
     Indication: Oesophageal cancer metastatic
     Dosage: UNK, QCY
     Dates: start: 201803
  3. DOCETAXEL [Suspect]
     Active Substance: DOCETAXEL
     Indication: Oesophageal cancer metastatic
     Dosage: UNK, QCY
     Dates: start: 201803
  4. DOCETAXEL [Suspect]
     Active Substance: DOCETAXEL
     Dosage: 10 MG/KG, QCY(ON DAY 1 OF A 21-DAY CYCLE PRIOR TO DOCETAXEL INFUSION)
     Route: 065
  5. PACLITAXEL [Suspect]
     Active Substance: PACLITAXEL
     Indication: Oesophageal cancer metastatic
     Dosage: 8 MG/KG, QCY(ON DAYS 1 AND 15 OF A 28-DAY CYCLE)
     Route: 065
     Dates: start: 202004
  6. PACLITAXEL [Suspect]
     Active Substance: PACLITAXEL
     Dosage: 8 MG/KG, QCY(EVERY TWO WEEKS)
  7. LEUCOVORIN [Suspect]
     Active Substance: LEUCOVORIN
     Indication: Oesophageal cancer metastatic
     Dosage: UNK, QCY
     Dates: start: 201803
  8. CYRAMZA [Suspect]
     Active Substance: RAMUCIRUMAB
     Indication: Oesophageal cancer metastatic
     Dosage: 10 MG/ML, QCY(THE 10 ML VIAL CONTAINS 100 MG OF RAMUCIRUMAB AS A CONCENTRATE FOR SOLUTION FOR INFUSI
     Route: 065
     Dates: start: 202004
  9. CYRAMZA [Suspect]
     Active Substance: RAMUCIRUMAB
     Dosage: 8 MG/KG(EVERY TWO WEEKS)

REACTIONS (8)
  - Spinal fracture [Recovered/Resolved]
  - Spinal compression fracture [Recovered/Resolved]
  - Haematotoxicity [Recovered/Resolved]
  - Anaemia [Recovered/Resolved]
  - Neutropenia [Recovered/Resolved]
  - Neuropathy peripheral [Recovering/Resolving]
  - Fall [Recovered/Resolved]
  - Off label use [Unknown]

NARRATIVE: CASE EVENT DATE: 20180101
